FAERS Safety Report 16262329 (Version 1)
Quarter: 2019Q2

REPORT INFORMATION
  Report Type: Spontaneous
  Country: US (occurrence: US)
  Receive Date: 20190501
  Receipt Date: 20190501
  Transmission Date: 20190711
  Serious: No
  Sender: FDA-Public Use
  Company Number: US-MEDIMETRIKS-2018-US-005436

PATIENT
  Age: 48 Year
  Sex: Male
  Weight: 97.07 kg

DRUGS (5)
  1. UNKNOWN INJECTION AT DERMATOLOGIST [Concomitant]
     Route: 065
     Dates: start: 201803, end: 201803
  2. PROTEIN POWDER [Concomitant]
  3. NEO-SYNALAR [Suspect]
     Active Substance: FLUOCINOLONE ACETONIDE\NEOMYCIN SULFATE
     Indication: SKIN DISORDER
     Dosage: TWICE DAILY TO HANDS FOR 2 WEEKS
     Route: 061
     Dates: start: 201803, end: 201803
  4. AMINO ACIDS [Concomitant]
     Active Substance: AMINO ACIDS
  5. MULIT-VITAMIN [Concomitant]

REACTIONS (1)
  - Drug ineffective [Not Recovered/Not Resolved]

NARRATIVE: CASE EVENT DATE: 201803
